FAERS Safety Report 8502982-5 (Version None)
Quarter: 2012Q3

REPORT INFORMATION
  Report Type: 
  Country: None (occurrence: None)
  Receive Date: 20120711
  Receipt Date: 20120703
  Transmission Date: 20120928
  Serious: Yes (Hospitalization, Other)
  Sender: FDA-Public Use
  Company Number: PHEH2011US06040

PATIENT
  Sex: Male

DRUGS (22)
  1. VALTURNA [Concomitant]
     Dosage: UNK UKN, UNK
  2. TEKTURNA [Concomitant]
     Indication: BLOOD PRESSURE
     Dosage: 300 MG, QD
     Route: 048
  3. LISINOPRIL [Suspect]
     Dosage: UNK UKN, UNK
  4. CYMBALTA [Concomitant]
     Indication: DEPRESSION
  5. CALCIUM [Concomitant]
  6. FISH OIL [Concomitant]
     Dosage: UNK UKN, UNK
  7. CARISOPRODOL [Concomitant]
     Indication: MUSCLE RELAXANT THERAPY
     Dosage: 350 MG, TID
     Route: 048
  8. PRAVASTATIN [Concomitant]
     Indication: BLOOD CHOLESTEROL
     Dosage: 10 MG, QD
     Route: 048
  9. HYDROCODONE [Concomitant]
     Indication: BACK PAIN
     Dosage: 750/300MG, QID
     Route: 048
  10. SOMA [Concomitant]
     Dosage: UNK UKN, UNK
  11. BENAZEPRIL HYDROCHLORIDE [Suspect]
     Dosage: UNK UKN, UNK
  12. SYNTHROID [Concomitant]
     Indication: THYROID DISORDER
     Dosage: UNK UKN, UNK
  13. FENTANYL-100 [Concomitant]
     Indication: PAIN
     Dosage: 50 UG, Q72H
     Route: 062
  14. DIOVAN [Suspect]
     Dosage: UNK UKN, UNK
  15. ANTIHYPERTENSIVES [Suspect]
     Indication: BLOOD PRESSURE
     Dosage: 1 DF, UNK
  16. ANALGESICS [Concomitant]
     Indication: BACK PAIN
     Dosage: UNK UKN, UNK
  17. ASPIRIN [Concomitant]
     Dosage: UNK UKN, UNK
  18. DIAZEPAM [Suspect]
     Dosage: UNK UKN, UNK
  19. CYMBALTA [Concomitant]
     Indication: ANXIETY
     Dosage: 60 MG, QD
     Route: 048
  20. HYDROCODONE [Concomitant]
     Indication: PAIN
  21. CLONAZEPAM [Concomitant]
     Indication: ANXIETY
     Dosage: 5 MG, QID
     Route: 048
  22. LEVOTHYROXINE SODIUM [Concomitant]
     Indication: THYROID DISORDER
     Dosage: 0.175 MG, QD
     Route: 048

REACTIONS (9)
  - ROAD TRAFFIC ACCIDENT [None]
  - HEAD INJURY [None]
  - HAEMORRHAGE [None]
  - VERTIGO [None]
  - ANXIETY [None]
  - SYNCOPE [None]
  - FALL [None]
  - DRUG INEFFECTIVE [None]
  - BLOOD PRESSURE FLUCTUATION [None]
